FAERS Safety Report 9160124 (Version 2)
Quarter: 2013Q2

REPORT INFORMATION
  Report Type: Report from Study
  Country: JP (occurrence: JP)
  Receive Date: 20130313
  Receipt Date: 20130513
  Transmission Date: 20140414
  Serious: Yes (Hospitalization, Other)
  Sender: FDA-Public Use
  Company Number: PHHY2013JP023804

PATIENT
  Age: 51 Year
  Sex: Male
  Weight: 58 kg

DRUGS (6)
  1. FTY 720 [Suspect]
     Indication: MULTIPLE SCLEROSIS
     Dosage: 0.5 MG, UNK
     Route: 048
     Dates: start: 20120711, end: 20121120
  2. LIORESAL [Concomitant]
     Indication: MUSCLE SPASMS
     Dosage: 10 MG, 20 MG
     Dates: start: 20120502
  3. ONEALFA [Concomitant]
     Indication: PROPHYLAXIS
     Dosage: 0.5 UG, UNK
     Route: 048
     Dates: end: 20121205
  4. TAKEPRON [Concomitant]
     Indication: PROPHYLAXIS
     Dosage: 15 MG, UNK
     Route: 048
  5. ALFAROL [Concomitant]
     Indication: PROPHYLAXIS
     Dosage: 1 UG, UNK
     Route: 048
     Dates: start: 20121205
  6. BUP-4 [Concomitant]
     Indication: BLADDER DISORDER
     Dosage: 200 MG, UNK
     Route: 048
     Dates: start: 20120123

REACTIONS (11)
  - Nephrolithiasis [Recovered/Resolved]
  - Pyelonephritis [Recovered/Resolved]
  - White blood cell count increased [Unknown]
  - Neutrophil count increased [Unknown]
  - Gamma-glutamyltransferase increased [Unknown]
  - Lymphocyte count decreased [Unknown]
  - Blood creatinine increased [Unknown]
  - Blood pressure increased [Unknown]
  - Alanine aminotransferase increased [Unknown]
  - Aspartate aminotransferase increased [Unknown]
  - White blood cell count decreased [Unknown]
